FAERS Safety Report 25441227 (Version 1)
Quarter: 2025Q2

REPORT INFORMATION
  Report Type: Spontaneous
  Country: GB (occurrence: GB)
  Receive Date: 20250616
  Receipt Date: 20250616
  Transmission Date: 20250717
  Serious: Yes (Other)
  Sender: DR REDDYS
  Company Number: None

PATIENT
  Age: 42 Year
  Sex: Female
  Weight: 65 kg

DRUGS (8)
  1. PREGABALIN [Suspect]
     Active Substance: PREGABALIN
     Indication: Product used for unknown indication
     Dosage: ONE TO BE TAKEN TWICE A DAY, GRAD...
     Dates: start: 20250403
  2. METOCLOPRAMIDE [Concomitant]
     Active Substance: METOCLOPRAMIDE
     Indication: Limb injury
     Dates: start: 20250114, end: 20250226
  3. METOCLOPRAMIDE [Concomitant]
     Active Substance: METOCLOPRAMIDE
     Dates: start: 20250303
  4. TRAMADOL [Concomitant]
     Active Substance: TRAMADOL
     Indication: Limb injury
     Dates: start: 20250114, end: 20250325
  5. NEFOPAM [Concomitant]
     Active Substance: NEFOPAM
     Indication: Neuropathy peripheral
     Dates: start: 20250210, end: 20250311
  6. NEFOPAM [Concomitant]
     Active Substance: NEFOPAM
     Dates: start: 20250303
  7. NORTRIPTYLINE [Concomitant]
     Active Substance: NORTRIPTYLINE
     Indication: Neuropathy peripheral
     Dates: start: 20250303
  8. PENICILLIN V [Concomitant]
     Active Substance: PENICILLIN V
     Indication: Product used for unknown indication
     Dates: start: 20250310, end: 20250408

REACTIONS (4)
  - Paranoia [Unknown]
  - Agitation [Unknown]
  - Anxiety [Unknown]
  - Insomnia [Unknown]
